FAERS Safety Report 22265088 (Version 2)
Quarter: 2023Q2

REPORT INFORMATION
  Report Type: Report from Study
  Country: US (occurrence: US)
  Receive Date: 20230428
  Receipt Date: 20230511
  Transmission Date: 20230722
  Serious: No
  Sender: FDA-Public Use
  Company Number: US-BIOVITRUM-2023US02571

PATIENT
  Age: 65 Year
  Sex: Female

DRUGS (2)
  1. KINERET [Suspect]
     Active Substance: ANAKINRA
     Indication: Rheumatoid arthritis
     Dosage: FREQUENCY DAILY?THREE TIMES A WEEK
     Route: 058
     Dates: start: 20230322
  2. KINERET [Suspect]
     Active Substance: ANAKINRA
     Dosage: THREE TIMES A WEEK
     Route: 058
     Dates: start: 20230322

REACTIONS (12)
  - Adverse drug reaction [Unknown]
  - Nausea [Unknown]
  - Headache [Unknown]
  - Decreased appetite [Unknown]
  - Ill-defined disorder [Unknown]
  - Pain [Unknown]
  - Drug ineffective [Unknown]
  - Swelling [Unknown]
  - Abdominal pain [Unknown]
  - Off label use [Unknown]
  - Feeling abnormal [Unknown]
  - Product dose omission issue [Unknown]
